FAERS Safety Report 7644220-1 (Version None)
Quarter: 2011Q3

REPORT INFORMATION
  Report Type: 
  Country: None (occurrence: None)
  Receive Date: 20110729
  Receipt Date: 20110725
  Transmission Date: 20111222
  Serious: Yes (Other)
  Sender: FDA-Public Use
  Company Number: US-BAYER-2011-041787

PATIENT
  Age: 38 Year
  Sex: Female
  Weight: 68 kg

DRUGS (1)
  1. MIRENA [Suspect]
     Indication: PRODUCT USED FOR UNKNOWN INDICATION
     Dosage: 20 MCG/24HR, CONT
     Route: 015
     Dates: start: 20110502, end: 20110505

REACTIONS (6)
  - DEVICE DIFFICULT TO USE [None]
  - UTERINE PERFORATION [None]
  - POST PROCEDURAL HAEMORRHAGE [None]
  - ABDOMINAL PAIN [None]
  - DEVICE DISLOCATION [None]
  - PYREXIA [None]
